FAERS Safety Report 14633273 (Version 1)
Quarter: 2018Q1

REPORT INFORMATION
  Report Type: Spontaneous
  Country: US (occurrence: US)
  Receive Date: 20180313
  Receipt Date: 20180313
  Transmission Date: 20180509
  Serious: No
  Sender: FDA-Public Use
  Company Number: US-VIFOR (INTERNATIONAL) INC.-VIT-2018-02569

PATIENT
  Sex: Male

DRUGS (30)
  1. VELTASSA [Suspect]
     Active Substance: PATIROMER
     Indication: HYPERKALAEMIA
     Route: 048
     Dates: start: 20160422
  2. CYMBALTA [Concomitant]
     Active Substance: DULOXETINE HYDROCHLORIDE
  3. NASONEX [Concomitant]
     Active Substance: MOMETASONE FUROATE
  4. NOVOLOG [Concomitant]
     Active Substance: INSULIN ASPART
  5. CYANOCOBALAMIN. [Concomitant]
     Active Substance: CYANOCOBALAMIN
  6. FOLIC ACID. [Concomitant]
     Active Substance: FOLIC ACID
  7. ASCORBIC ACID~~METHYLSULFONYLMETHANE~~MANGANESE SULFATE~~GLUCOSAMINE SULFATE~~ZINGIBER OFFICINALE OI [Concomitant]
  8. VITAMINS NOS [Concomitant]
     Active Substance: VITAMINS
  9. RISPERDAL [Concomitant]
     Active Substance: RISPERIDONE
  10. BYSTOLIC [Concomitant]
     Active Substance: NEBIVOLOL HYDROCHLORIDE
  11. HYDRALAZINE HYDROCHLORIDE. [Concomitant]
     Active Substance: HYDRALAZINE HYDROCHLORIDE
  12. IRON [Concomitant]
     Active Substance: IRON
  13. LEVOCETIRIZINE DIHYDROCHLORIDE. [Concomitant]
     Active Substance: LEVOCETIRIZINE DIHYDROCHLORIDE
  14. ARANESP [Concomitant]
     Active Substance: DARBEPOETIN ALFA
  15. DILTIAZEM HYDROCHLORIDE. [Concomitant]
     Active Substance: DILTIAZEM HYDROCHLORIDE
  16. ERGOCALCIFEROL. [Concomitant]
     Active Substance: ERGOCALCIFEROL
  17. FERROUS SULFATE. [Concomitant]
     Active Substance: FERROUS SULFATE
  18. TORASEMIDE [Concomitant]
     Active Substance: TORSEMIDE
  19. ERGOCALCIFEROL. [Concomitant]
     Active Substance: ERGOCALCIFEROL
  20. CYANOCOBALAMIN. [Concomitant]
     Active Substance: CYANOCOBALAMIN
  21. LANTUS SOLOSTAR [Concomitant]
     Active Substance: INSULIN GLARGINE
  22. FENOFIBRATE. [Concomitant]
     Active Substance: FENOFIBRATE
  23. FISH OIL [Concomitant]
     Active Substance: FISH OIL
  24. NUVIGIL [Concomitant]
     Active Substance: ARMODAFINIL
  25. ZOLPIDEM TARTRATE. [Concomitant]
     Active Substance: ZOLPIDEM TARTRATE
  26. PARACETAMOL [Concomitant]
     Active Substance: ACETAMINOPHEN
  27. ATORVASTATIN CALCIUM. [Concomitant]
     Active Substance: ATORVASTATIN CALCIUM
  28. CLONAZEPAM. [Concomitant]
     Active Substance: CLONAZEPAM
  29. FLUDROCORTISONE ACETATE. [Concomitant]
     Active Substance: FLUDROCORTISONE ACETATE
  30. IPRATROPIUM BROMIDE. [Concomitant]
     Active Substance: IPRATROPIUM BROMIDE

REACTIONS (1)
  - Diarrhoea [Unknown]
